FAERS Safety Report 5657739-X (Version None)
Quarter: 2008Q1

REPORT INFORMATION
  Report Type: 
  Country: None (occurrence: None)
  Receive Date: 20080310
  Receipt Date: 20080304
  Transmission Date: 20080703
  Serious: Yes (Other)
  Sender: FDA-Public Use
  Company Number: PHRM2008FR00985

PATIENT
  Age: 5 Year
  Sex: Male

DRUGS (6)
  1. TEGRETOL [Suspect]
     Indication: EPILEPSY
     Dosage: 200 MG, BID
     Route: 048
     Dates: start: 20080201
  2. EPITOMAX [Concomitant]
     Indication: EPILEPSY
     Route: 048
     Dates: end: 20080201
  3. RIVOTRIL [Concomitant]
     Indication: EPILEPSY
     Dosage: 0.4 MG, QID
     Route: 048
  4. GARDENAL [Concomitant]
     Indication: EPILEPSY
     Dosage: 155 MG, QD
  5. FAT/CARBOHYDRATES/PROTEINS/MINERALS/VITAMINS, [Concomitant]
  6. TRILEPTAL [Suspect]
     Indication: EPILEPSY
     Dosage: 900 MG, BID
     Route: 048

REACTIONS (3)
  - ANGIOEDEMA [None]
  - FACE OEDEMA [None]
  - RASH [None]
